FAERS Safety Report 5774412-8 (Version None)
Quarter: 2008Q2

REPORT INFORMATION
  Report Type: 
  Country: None (occurrence: None)
  Receive Date: 20080616
  Receipt Date: 20080603
  Transmission Date: 20081010
  Serious: Yes (Disabling, Other)
  Sender: FDA-Public Use
  Company Number: FR-PFIZER INC-2008028940

PATIENT
  Sex: Female

DRUGS (1)
  1. CHANTIX [Suspect]
     Indication: SMOKING CESSATION THERAPY
     Dates: start: 20071101, end: 20080101

REACTIONS (10)
  - ABDOMINAL PAIN [None]
  - CYSTITIS [None]
  - MALAISE [None]
  - NAUSEA [None]
  - NEPHROLITHIASIS [None]
  - OLIGURIA [None]
  - PAIN [None]
  - URINARY TRACT DISORDER [None]
  - URINARY TRACT INFECTION [None]
  - WITHDRAWAL SYNDROME [None]
